FAERS Safety Report 9776689 (Version 3)
Quarter: 2014Q3

REPORT INFORMATION
  Report Type: Spontaneous
  Country: JP (occurrence: JP)
  Receive Date: 20131220
  Receipt Date: 20140703
  Transmission Date: 20150326
  Serious: Yes (Hospitalization)
  Sender: FDA-Public Use
  Company Number: JP-ABBVIE-13P-087-1180863-00

PATIENT
  Age: 75 Year
  Sex: Female
  Weight: 45 kg

DRUGS (18)
  1. RHEUMATREX [Suspect]
     Active Substance: METHOTREXATE SODIUM
     Indication: RHEUMATOID ARTHRITIS
     Route: 048
     Dates: start: 20130612, end: 20131204
  2. RHEUMATREX [Suspect]
     Active Substance: METHOTREXATE SODIUM
     Dates: start: 20120718, end: 20131129
  3. CILNIDIPINE [Concomitant]
     Active Substance: CILNIDIPINE
     Indication: HYPERTENSION
     Route: 048
     Dates: start: 20130306
  4. MINOCYCLINE HYDROCHLORIDE. [Concomitant]
     Active Substance: MINOCYCLINE HYDROCHLORIDE
     Indication: PRODUCT USED FOR UNKNOWN INDICATION
     Dates: start: 20131204
  5. AMOXICILLIN AND CLAVULANATE POTASSIUM [Concomitant]
     Active Substance: AMOXICILLIN\CLAVULANATE POTASSIUM
     Indication: PRODUCT USED FOR UNKNOWN INDICATION
     Dates: start: 20131209, end: 20131211
  6. RHEUMATREX [Suspect]
     Active Substance: METHOTREXATE SODIUM
     Dates: start: 20130612, end: 20131204
  7. LOXOPROFEN SODIUM [Suspect]
     Active Substance: LOXOPROFEN SODIUM
     Indication: RHEUMATOID ARTHRITIS
     Route: 048
     Dates: start: 20120718, end: 20131204
  8. PREDNISOLONE. [Suspect]
     Active Substance: PREDNISOLONE
     Indication: RHEUMATOID ARTHRITIS
     Route: 048
     Dates: start: 20121114
  9. RHEUMATREX [Suspect]
     Active Substance: METHOTREXATE SODIUM
     Dates: start: 20120718, end: 20131129
  10. HUMIRA [Suspect]
     Active Substance: ADALIMUMAB
     Indication: RHEUMATOID ARTHRITIS
     Route: 058
     Dates: start: 20130809, end: 20131127
  11. PREDNISOLONE. [Suspect]
     Active Substance: PREDNISOLONE
     Dates: start: 20120718, end: 20131211
  12. ISEPAMICIN SULFATE [Concomitant]
     Indication: PRODUCT USED FOR UNKNOWN INDICATION
  13. RHEUMATREX [Suspect]
     Active Substance: METHOTREXATE SODIUM
     Dates: start: 20130612, end: 20131204
  14. RHEUMATREX [Suspect]
     Active Substance: METHOTREXATE SODIUM
     Dates: start: 20120718, end: 20131129
  15. CEFTRIAXONE SODIUM. [Concomitant]
     Active Substance: CEFTRIAXONE SODIUM
     Indication: PRODUCT USED FOR UNKNOWN INDICATION
  16. FOLIC ACID. [Concomitant]
     Active Substance: FOLIC ACID
     Indication: RHEUMATOID ARTHRITIS
     Route: 048
     Dates: start: 20120718, end: 20131129
  17. LOSARTAN POTASSIUM. [Concomitant]
     Active Substance: LOSARTAN POTASSIUM
     Indication: HYPERTENSION
     Route: 048
     Dates: start: 20120718, end: 20131204
  18. LANSOPRAZOLE. [Concomitant]
     Active Substance: LANSOPRAZOLE
     Indication: GASTROOESOPHAGEAL REFLUX DISEASE
     Route: 048
     Dates: start: 20120718

REACTIONS (6)
  - Yellow skin [Unknown]
  - Vomiting [Unknown]
  - Tonsillar disorder [Recovered/Resolved]
  - Acute hepatitis B [Recovered/Resolved]
  - Acute tonsillitis [Recovered/Resolved]
  - Tonsillitis [Recovered/Resolved]

NARRATIVE: CASE EVENT DATE: 20131204
